FAERS Safety Report 5108645-0 (Version None)
Quarter: 2006Q3

REPORT INFORMATION
  Report Type: 
  Country: None (occurrence: None)
  Receive Date: 20060915
  Receipt Date: 20060901
  Transmission Date: 20061208
  Serious: Yes (Hospitalization, Other)
  Sender: FDA-Public Use
  Company Number: 2006AL002641

PATIENT
  Age: 39 Year
  Sex: Female

DRUGS (3)
  1. CARBAMAZEPINE [Suspect]
     Indication: CONVULSION
     Dosage: QD
     Dates: start: 20030901, end: 20031001
  2. HERBAL MEDICATION [Concomitant]
  3. VALPROATE SODIUM [Concomitant]

REACTIONS (6)
  - ALANINE AMINOTRANSFERASE INCREASED [None]
  - ASPARTATE AMINOTRANSFERASE INCREASED [None]
  - CONDITION AGGRAVATED [None]
  - DRUG RASH WITH EOSINOPHILIA AND SYSTEMIC SYMPTOMS [None]
  - EPILEPSY [None]
  - FACE OEDEMA [None]
